FAERS Safety Report 5764585-5 (Version None)
Quarter: 2008Q2

REPORT INFORMATION
  Report Type: 
  Country: None (occurrence: None)
  Receive Date: 20080610
  Receipt Date: 20080529
  Transmission Date: 20081010
  Serious: Yes (Hospitalization)
  Sender: FDA-Public Use
  Company Number: FR-PFIZER INC-2008047454

PATIENT
  Sex: Female

DRUGS (16)
  1. METRONIDAZOLE HCL [Suspect]
     Indication: PSEUDOMEMBRANOUS COLITIS
     Dosage: DAILY DOSE:500MG-TEXT:500 MG-FREQ:DAILY
     Route: 048
     Dates: start: 20080113, end: 20080119
  2. PRAZEPAM [Suspect]
     Indication: ANXIETY
     Route: 042
     Dates: start: 20080113, end: 20080114
  3. MORPHINE [Suspect]
     Route: 042
     Dates: start: 20080113, end: 20080114
  4. OMEPRAZOLE [Suspect]
     Dosage: DAILY DOSE:40MG-TEXT:40 MG-FREQ:DAILY
     Dates: start: 20080113, end: 20080120
  5. VITAMIN K TAB [Suspect]
     Dates: start: 20080113, end: 20080120
  6. OFLOXACIN [Suspect]
     Indication: PSEUDOMEMBRANOUS COLITIS
     Dosage: DAILY DOSE:200MG-TEXT:200 MG-FREQ:DAILY
     Route: 048
     Dates: start: 20080113, end: 20080114
  7. HYDROXYZINE HYDROCHLORIDE [Concomitant]
     Route: 042
     Dates: start: 20080113, end: 20080202
  8. INSULIN [Concomitant]
     Dates: start: 20080113, end: 20080202
  9. ACETAMINOPHEN [Concomitant]
  10. RETINOL [Concomitant]
  11. NEFOPAM HYDROCHLORIDE [Concomitant]
  12. ENOXAPARIN SODIUM [Concomitant]
  13. PROPOFOL [Concomitant]
  14. ALBUMIN (HUMAN) [Concomitant]
  15. HYDROCORTISONE [Concomitant]
  16. ETHANOLAMINE [Concomitant]

REACTIONS (3)
  - ERYTHEMA [None]
  - PRURITUS [None]
  - PSEUDOMEMBRANOUS COLITIS [None]
